FAERS Safety Report 12588175 (Version 4)
Quarter: 2016Q3

REPORT INFORMATION
  Report Type: Report from Study
  Country: US (occurrence: US)
  Receive Date: 20160725
  Receipt Date: 20160811
  Transmission Date: 20161109
  Serious: Yes (Other)
  Sender: FDA-Public Use
  Company Number: US-GILEAD-2016-0225061

PATIENT
  Age: 61 Year
  Sex: Female

DRUGS (3)
  1. AMBRISENTAN [Suspect]
     Active Substance: AMBRISENTAN
     Indication: PRODUCT USED FOR UNKNOWN INDICATION
     Dosage: 5 MG, QD
     Route: 065
     Dates: start: 20160407
  2. OXYGEN. [Concomitant]
     Active Substance: OXYGEN
  3. ADEMPAS [Suspect]
     Active Substance: RIOCIGUAT
     Indication: PRODUCT USED FOR UNKNOWN INDICATION
     Dosage: UNK
     Route: 065

REACTIONS (11)
  - Iron deficiency anaemia [Unknown]
  - Diarrhoea [Unknown]
  - Peripheral swelling [Unknown]
  - Pain in extremity [Unknown]
  - Oedema peripheral [Unknown]
  - Fatigue [Unknown]
  - Pruritus [Unknown]
  - Neuropathy peripheral [Unknown]
  - Dyspnoea [Not Recovered/Not Resolved]
  - Pancytopenia [Unknown]
  - Decreased appetite [Unknown]
